FAERS Safety Report 25780673 (Version 4)
Quarter: 2025Q4

REPORT INFORMATION
  Report Type: Report from Study
  Country: EU (occurrence: EU)
  Receive Date: 20250909
  Receipt Date: 20251021
  Transmission Date: 20260118
  Serious: Yes (Hospitalization, Other)
  Sender: ABBVIE
  Company Number: EU-ABBVIE-6427908

PATIENT
  Age: 67 Year
  Sex: Female

DRUGS (1)
  1. FOSCARBIDOPA\FOSLEVODOPA [Suspect]
     Active Substance: FOSCARBIDOPA\FOSLEVODOPA
     Indication: Parkinson^s disease
     Dosage: CRN 0.15 ML/H, CR 0.15 ML/H, CRH 0.17 ML/H, ED 0.10 ML (16 H THERAPY)
     Route: 058
     Dates: start: 20250819, end: 20251015

REACTIONS (6)
  - Dyskinesia [Unknown]
  - Paralysis [Unknown]
  - Muscle twitching [Unknown]
  - Stress [Unknown]
  - Intentional self-injury [Recovered/Resolved]
  - Feeling abnormal [Unknown]

NARRATIVE: CASE EVENT DATE: 20250101
